FAERS Safety Report 19051338 (Version 1)
Quarter: 2021Q1

REPORT INFORMATION
  Report Type: Spontaneous
  Country: GB (occurrence: GB)
  Receive Date: 20210324
  Receipt Date: 20210324
  Transmission Date: 20210420
  Serious: Yes (Hospitalization)
  Sender: FDA-Public Use
  Company Number: NVSC2021GB063958

PATIENT
  Sex: Female

DRUGS (10)
  1. NEORAL [Suspect]
     Active Substance: CYCLOSPORINE
     Indication: APLASTIC ANAEMIA
  2. NEORAL [Suspect]
     Active Substance: CYCLOSPORINE
     Indication: ENDOCARDITIS BACTERIAL
     Dosage: UNK
     Route: 065
  3. CIPROFLOXACIN. [Suspect]
     Active Substance: CIPROFLOXACIN
     Indication: APLASTIC ANAEMIA
  4. FLUCONAZOLE. [Suspect]
     Active Substance: FLUCONAZOLE
     Indication: APLASTIC ANAEMIA
  5. DAPTOMYCIN. [Suspect]
     Active Substance: DAPTOMYCIN
     Indication: APLASTIC ANAEMIA
  6. RIFAMPIN. [Suspect]
     Active Substance: RIFAMPIN
     Indication: APLASTIC ANAEMIA
     Dosage: UNK
     Route: 065
  7. CIPROFLOXACIN. [Suspect]
     Active Substance: CIPROFLOXACIN
     Indication: ENDOCARDITIS BACTERIAL
     Dosage: UNK
     Route: 065
  8. DAPTOMYCIN. [Suspect]
     Active Substance: DAPTOMYCIN
     Indication: ENDOCARDITIS BACTERIAL
     Dosage: UNK
     Route: 065
  9. FLUCONAZOLE. [Suspect]
     Active Substance: FLUCONAZOLE
     Indication: ENDOCARDITIS BACTERIAL
     Dosage: UNK
     Route: 065
  10. RIFAMPIN. [Suspect]
     Active Substance: RIFAMPIN
     Indication: ENDOCARDITIS BACTERIAL

REACTIONS (1)
  - Drug interaction [Unknown]
